FAERS Safety Report 20778960 (Version 2)
Quarter: 2022Q2

REPORT INFORMATION
  Report Type: Spontaneous
  Country: US (occurrence: US)
  Receive Date: 20220503
  Receipt Date: 20220513
  Transmission Date: 20220721
  Serious: No
  Sender: FDA-Public Use
  Company Number: US-PFIZER INC-202101720159

PATIENT
  Age: 79 Year
  Sex: Female

DRUGS (1)
  1. XALKORI [Suspect]
     Active Substance: CRIZOTINIB
     Indication: Lung carcinoma cell type unspecified stage 0
     Dosage: 250 MG

REACTIONS (5)
  - Memory impairment [Unknown]
  - Peripheral swelling [Unknown]
  - Influenza [Recovered/Resolved]
  - Visual impairment [Unknown]
  - Dysgraphia [Unknown]
